FAERS Safety Report 4785492-0 (Version None)
Quarter: 2005Q3

REPORT INFORMATION
  Report Type: 
  Country: None (occurrence: None)
  Receive Date: 20050929
  Receipt Date: 20050905
  Transmission Date: 20060218
  Serious: No
  Sender: FDA-Public Use
  Company Number: EWC050945918

PATIENT
  Age: 57 Year
  Sex: Female

DRUGS (3)
  1. OLANZAPINE [Suspect]
     Indication: PHOBIA
     Dosage: ORAL
     Route: 048
     Dates: start: 20050501, end: 20050905
  2. ELOPRAM (CITALOPRAM) [Concomitant]
  3. SULFASALAZINE [Concomitant]

REACTIONS (2)
  - HAEMATOCHEZIA [None]
  - PANCREATIC DISORDER [None]
